FAERS Safety Report 14380430 (Version 1)
Quarter: 2018Q1

REPORT INFORMATION
  Report Type: Spontaneous
  Country: US (occurrence: US)
  Receive Date: 20180112
  Receipt Date: 20180112
  Transmission Date: 20180509
  Serious: Yes (Other)
  Sender: FDA-Public Use
  Company Number: US-CELGENEUS-USA-20180103225

PATIENT
  Age: 53 Year
  Sex: Female

DRUGS (4)
  1. OXALIPLATIN. [Suspect]
     Active Substance: OXALIPLATIN
     Indication: ADENOCARCINOMA PANCREAS
     Dosage: 85 MILLIGRAM/SQ. METER
     Route: 065
     Dates: start: 201703, end: 201709
  2. CAPECITABINE. [Suspect]
     Active Substance: CAPECITABINE
     Indication: ADENOCARCINOMA PANCREAS
     Dosage: 1250 MILLIGRAM/SQ. METER
     Route: 065
     Dates: start: 201703, end: 201709
  3. GEMCITABINE [Suspect]
     Active Substance: GEMCITABINE\GEMCITABINE HYDROCHLORIDE
     Indication: ADENOCARCINOMA PANCREAS
     Route: 065
     Dates: start: 201608, end: 201612
  4. ABRAXANE [Suspect]
     Active Substance: PACLITAXEL
     Indication: ADENOCARCINOMA PANCREAS
     Route: 065
     Dates: start: 201608, end: 201612

REACTIONS (1)
  - Adenocarcinoma pancreas [Unknown]
